FAERS Safety Report 8451210 (Version 2)
Quarter: 2014Q2

REPORT INFORMATION
  Report Type: Spontaneous
  Country: US (occurrence: None)
  Receive Date: 20120216
  Receipt Date: 20140604
  Transmission Date: 20141212
  Serious: Yes (Hospitalization)
  Sender: FDA-Public Use
  Company Number: 20111010CINRY2359

PATIENT
  Age: 28 Year
  Sex: Female

DRUGS (2)
  1. CINRYZE [Suspect]
     Indication: HEREDITARY ANGIOEDEMA
     Dosage: (1000 IU, 1 IN 3 D, INTRAVENOUS
     Route: 042
     Dates: start: 2008
  2. CINRYZE [Suspect]
     Indication: PROPHYLAXIS
     Dosage: (1000 IU, 1 IN 3 D, INTRAVENOUS
     Route: 042
     Dates: start: 2008

REACTIONS (1)
  - Hereditary angioedema [None]
